FAERS Safety Report 4380063-2 (Version None)
Quarter: 2004Q2

REPORT INFORMATION
  Report Type: 
  Country: None (occurrence: None)
  Receive Date: 20040614
  Receipt Date: 20040217
  Transmission Date: 20050107
  Serious: No
  Sender: FDA-Public Use
  Company Number: M03-341-092

PATIENT
  Age: 68 Year
  Sex: Male
  Weight: 68 kg

DRUGS (10)
  1. VELCADE [Suspect]
     Indication: MULTIPLE MYELOMA
     Dosage: 1.8MG/M2: INTRAVENOUS BOLUS
     Route: 040
     Dates: start: 20030627, end: 20030825
  2. ACETYLSALICYLIC ACID SRT [Concomitant]
  3. AREDIA [Concomitant]
  4. FLUOXETINE [Concomitant]
  5. LACTULOSE [Concomitant]
  6. LORTAB [Concomitant]
  7. METOPROLOL TARTRATE [Concomitant]
  8. MS CONTIN [Concomitant]
  9. PRAVACHOL [Concomitant]
  10. RANITIDINE [Concomitant]

REACTIONS (1)
  - CENTRAL LINE INFECTION [None]
